FAERS Safety Report 10776975 (Version 4)
Quarter: 2016Q2

REPORT INFORMATION
  Report Type: Spontaneous
  Country: US (occurrence: US)
  Receive Date: 20150209
  Receipt Date: 20160608
  Transmission Date: 20160815
  Serious: Yes (Other)
  Sender: FDA-Public Use
  Company Number: US-BAYER-2015-018565

PATIENT
  Age: 18 Year
  Sex: Female
  Weight: 69 kg

DRUGS (5)
  1. MIRENA [Suspect]
     Active Substance: LEVONORGESTREL
     Indication: CONTRACEPTION
     Dosage: 20 MCG/24HR, CONT
     Route: 015
     Dates: start: 20140709, end: 20150220
  2. ORTHO TRI CYCLEN LO [Concomitant]
     Active Substance: ETHINYL ESTRADIOL\NORGESTIMATE
  3. CALCIUM [Concomitant]
     Active Substance: CALCIUM
  4. BUSPIRONE [Concomitant]
     Active Substance: BUSPIRONE HYDROCHLORIDE
  5. IBUPROFEN. [Concomitant]
     Active Substance: IBUPROFEN

REACTIONS (13)
  - Feeling abnormal [None]
  - Abdominal pain [None]
  - Menorrhagia [None]
  - Ovarian cyst ruptured [None]
  - Procedural pain [Recovered/Resolved]
  - Device difficult to use [None]
  - Pain [None]
  - Pain [None]
  - Dysuria [None]
  - Device dislocation [None]
  - Ovarian cyst [None]
  - Abdominal pain lower [None]
  - Dyspareunia [None]

NARRATIVE: CASE EVENT DATE: 2014
